FAERS Safety Report 24895658 (Version 1)
Quarter: 2025Q1

REPORT INFORMATION
  Report Type: Spontaneous
  Country: CA (occurrence: CA)
  Receive Date: 20250128
  Receipt Date: 20250128
  Transmission Date: 20250409
  Serious: Yes (Hospitalization)
  Sender: PFIZER
  Company Number: CA-PFIZER INC-PV202500009972

PATIENT
  Age: 68 Year
  Sex: Male

DRUGS (15)
  1. ZITHROMAX [Interacting]
     Active Substance: AZITHROMYCIN DIHYDRATE
     Indication: Productive cough
     Dosage: 500 MG, 1X/DAY, FIRST DAY
     Route: 048
  2. ZITHROMAX [Interacting]
     Active Substance: AZITHROMYCIN DIHYDRATE
     Indication: Wheezing
     Dosage: 250 MG, 1X/DAY, THEREAFTER
     Route: 048
  3. ZITHROMAX [Interacting]
     Active Substance: AZITHROMYCIN DIHYDRATE
     Indication: Dyspnoea
  4. THEOPHYLLINE [Interacting]
     Active Substance: THEOPHYLLINE
     Indication: Productive cough
     Dosage: 450 MG, 2X/DAY
  5. THEOPHYLLINE [Interacting]
     Active Substance: THEOPHYLLINE
     Indication: Wheezing
     Dosage: 300 MG, 2X/DAY
  6. THEOPHYLLINE [Interacting]
     Active Substance: THEOPHYLLINE
     Indication: Dyspnoea
  7. TERBUTALINE [Interacting]
     Active Substance: TERBUTALINE
     Indication: Productive cough
     Route: 045
  8. TERBUTALINE [Interacting]
     Active Substance: TERBUTALINE
     Indication: Wheezing
  9. TERBUTALINE [Interacting]
     Active Substance: TERBUTALINE
     Indication: Dyspnoea
  10. BECLOMETHASONE [Interacting]
     Active Substance: BECLOMETHASONE
     Indication: Productive cough
     Route: 045
  11. BECLOMETHASONE [Interacting]
     Active Substance: BECLOMETHASONE
     Indication: Wheezing
  12. BECLOMETHASONE [Interacting]
     Active Substance: BECLOMETHASONE
     Indication: Dyspnoea
  13. CEFUROXIME [Interacting]
     Active Substance: CEFUROXIME
     Indication: Productive cough
     Dosage: 750 MG, 3X/DAY
     Route: 048
  14. CEFUROXIME [Interacting]
     Active Substance: CEFUROXIME
     Indication: Wheezing
     Dosage: 500 MG, 3X/DAY
     Route: 048
  15. CEFUROXIME [Interacting]
     Active Substance: CEFUROXIME
     Indication: Dyspnoea
     Route: 042

REACTIONS (1)
  - Drug interaction [Unknown]
